FAERS Safety Report 8225099-6 (Version None)
Quarter: 2012Q1

REPORT INFORMATION
  Report Type: 
  Country: None (occurrence: None)
  Receive Date: 20120321
  Receipt Date: 20120315
  Transmission Date: 20120608
  Serious: Yes (Other)
  Sender: FDA-Public Use
  Company Number: PHEH2012US005318

PATIENT
  Sex: Male

DRUGS (8)
  1. VITAMIN D [Concomitant]
     Dosage: 2000 U, QD
  2. CARVEDILOL [Concomitant]
     Dosage: 3.125 MG, BID
  3. PROMETHAZINE [Concomitant]
     Dosage: 6.25 MG, PRN
  4. IBUPROFEN [Concomitant]
     Dosage: 200 MG, PRN
  5. RECLAST [Suspect]
     Dosage: UNK UKN, UNK
     Route: 042
  6. ZOCOR [Concomitant]
     Dosage: 20 MG, QD
  7. XANAX [Concomitant]
     Dosage: 1 MG, PRN
  8. EYE DROPS [Concomitant]
     Indication: DRY EYE

REACTIONS (3)
  - OSTEONECROSIS OF JAW [None]
  - EXPOSED BONE IN JAW [None]
  - BONE LESION [None]
